FAERS Safety Report 7584339-7 (Version None)
Quarter: 2011Q2

REPORT INFORMATION
  Report Type: 
  Country: None (occurrence: None)
  Receive Date: 20110630
  Receipt Date: 20110617
  Transmission Date: 20111010
  Serious: Yes (Death)
  Sender: FDA-Public Use
  Company Number: ES-UCBSA-035624

PATIENT
  Age: 44 Year
  Sex: Female

DRUGS (6)
  1. TEMODAL [Interacting]
     Indication: GLIOBLASTOMA
     Dates: start: 20110101, end: 20110505
  2. AUGMENTIN '125' [Interacting]
     Indication: PHARYNGITIS
     Route: 048
     Dates: start: 20110504, end: 20110505
  3. KEPPRA [Suspect]
     Indication: GLIOBLASTOMA
     Route: 048
     Dates: start: 20110101, end: 20110505
  4. KETOROLAC TROMETHAMINE [Interacting]
     Indication: PHARYNGITIS
     Route: 048
     Dates: start: 20110504, end: 20110505
  5. DEXAMETHASONE [Concomitant]
  6. OMEPRAZOLE [Concomitant]

REACTIONS (4)
  - DRUG INTERACTION [None]
  - TOXIC EPIDERMAL NECROLYSIS [None]
  - LEUKOPENIA [None]
  - THROMBOCYTOPENIA [None]
